FAERS Safety Report 20446503 (Version 5)
Quarter: 2022Q2

REPORT INFORMATION
  Report Type: Other
  Country: JP (occurrence: JP)
  Receive Date: 20220208
  Receipt Date: 20220623
  Transmission Date: 20220721
  Serious: Yes (Hospitalization, Other)
  Sender: FDA-Public Use
  Company Number: JP-CHUGAI-2022002801AA

PATIENT
  Age: 50 Year
  Sex: Female
  Weight: 39 kg

DRUGS (3)
  1. SATRALIZUMAB [Suspect]
     Active Substance: SATRALIZUMAB
     Indication: Neuromyelitis optica spectrum disorder
     Dosage: 120 MILLIGRAM, ONCE/2WEEKS
     Route: 058
     Dates: start: 20210506, end: 20210603
  2. SATRALIZUMAB [Suspect]
     Active Substance: SATRALIZUMAB
     Dosage: 120 MILLIGRAM, ONCE/4WEEKS
     Route: 058
     Dates: start: 20210701
  3. PREDNISOLONE [Concomitant]
     Active Substance: PREDNISOLONE
     Indication: Neuromyelitis optica spectrum disorder
     Dosage: 13-15MG/DAY
     Route: 065

REACTIONS (4)
  - Hydronephrosis [Unknown]
  - Renal impairment [Unknown]
  - Septic shock [Recovered/Resolved]
  - Urinary tract infection bacterial [Recovered/Resolved]

NARRATIVE: CASE EVENT DATE: 20220101
